FAERS Safety Report 24714149 (Version 1)
Quarter: 2024Q4

REPORT INFORMATION
  Report Type: Spontaneous
  Country: US (occurrence: US)
  Receive Date: 20241209
  Receipt Date: 20241209
  Transmission Date: 20250115
  Serious: No
  Sender: REGENERON
  Company Number: US-REGENERON PHARMACEUTICALS, INC.-2024-143524

PATIENT
  Sex: Male

DRUGS (2)
  1. EYLEA [Suspect]
     Active Substance: AFLIBERCEPT
     Indication: Macular degeneration
     Dosage: UNK, EVERY 6 WEEKS, FORMULATION: UNKNOWN
     Dates: start: 2021, end: 2022
  2. EYLEA [Suspect]
     Active Substance: AFLIBERCEPT
     Indication: Exudative retinopathy
     Dosage: UNK, EVERY 6 WEEKS, FORMULATION: UNKNOWN
     Dates: start: 202407

REACTIONS (2)
  - Off label use [Not Recovered/Not Resolved]
  - Drug effect less than expected [Unknown]

NARRATIVE: CASE EVENT DATE: 20210101
